FAERS Safety Report 10442182 (Version 1)
Quarter: 2014Q3

REPORT INFORMATION
  Report Type: Spontaneous
  Country: DE (occurrence: DE)
  Receive Date: 20140909
  Receipt Date: 20140909
  Transmission Date: 20150326
  Serious: Yes (Life-Threatening, Hospitalization)
  Sender: FDA-Public Use
  Company Number: DE-ACTAVIS-2014-19294

PATIENT
  Age: 54 Year
  Sex: Female
  Weight: 86 kg

DRUGS (5)
  1. CIMETIDIN                          /00397401/ [Concomitant]
     Indication: PREMEDICATION
     Dosage: 200 MG, DAILY
     Route: 017
  2. FENISTIL [Concomitant]
     Active Substance: DIMETHINDENE
     Indication: PREMEDICATION
     Dosage: 4 MG, DAILY
     Route: 017
  3. FORTECORTIN                        /00016001/ [Concomitant]
     Active Substance: DEXAMETHASONE
     Indication: PREMEDICATION
     Dosage: 16 MG, DAILY
     Route: 017
  4. PACLITAXEL (UNKNOWN) [Suspect]
     Active Substance: PACLITAXEL
     Indication: CHEMOTHERAPY
     Dosage: 175 MG/M2, DAILY
     Route: 065
  5. ONDANSETRON [Concomitant]
     Active Substance: ONDANSETRON
     Indication: PREMEDICATION
     Dosage: 8 MG, DAILY
     Route: 017

REACTIONS (5)
  - Hypersensitivity [Unknown]
  - Pain [Unknown]
  - Circulatory collapse [Unknown]
  - Respiratory arrest [Unknown]
  - Loss of consciousness [Unknown]

NARRATIVE: CASE EVENT DATE: 20140731
